FAERS Safety Report 8873600 (Version 1)
Quarter: 2012Q4

REPORT INFORMATION
  Report Type: 
  Country: NO (occurrence: NO)
  Receive Date: 20121030
  Receipt Date: 20121030
  Transmission Date: 20130627
  Serious: Yes (Other)
  Sender: FDA-Public Use
  Company Number: PHHY2012NO094616

PATIENT
  Sex: Female

DRUGS (1)
  1. FLUOXETINE [Suspect]
     Dosage: 20 mg, QD
     Route: 048
     Dates: start: 20100511, end: 20101013

REACTIONS (2)
  - Prolonged pregnancy [Unknown]
  - Exposure during pregnancy [Recovered/Resolved]
